FAERS Safety Report 17061910 (Version 1)
Quarter: 2019Q4

REPORT INFORMATION
  Report Type: Spontaneous
  Country: AR (occurrence: AR)
  Receive Date: 20191121
  Receipt Date: 20191121
  Transmission Date: 20200122
  Serious: Yes (Other)
  Sender: FDA-Public Use
  Company Number: AR-AMGEN-ARGSP2019192524

PATIENT
  Age: 57 Year
  Sex: Female

DRUGS (2)
  1. ENBREL [Suspect]
     Active Substance: ETANERCEPT
     Dosage: 50 MILLIGRAM, EVERY 15 DAYS
     Route: 065
     Dates: start: 201907
  2. ENBREL [Suspect]
     Active Substance: ETANERCEPT
     Indication: RHEUMATOID ARTHRITIS
     Dosage: 50 MILLIGRAM, ONE DOSE WEEKLY
     Route: 065
     Dates: start: 20160511

REACTIONS (6)
  - Vitamin D decreased [Unknown]
  - Influenza [Recovered/Resolved]
  - Dislocation of vertebra [Unknown]
  - Osteoporosis [Unknown]
  - Off label use [Unknown]
  - Bone pain [Recovered/Resolved]

NARRATIVE: CASE EVENT DATE: 201907
